FAERS Safety Report 6396817-7 (Version None)
Quarter: 2009Q4

REPORT INFORMATION
  Report Type: 
  Country: None (occurrence: None)
  Receive Date: 20091008
  Receipt Date: 20091008
  Transmission Date: 20100525
  Serious: Yes (Life-Threatening, Hospitalization)
  Sender: FDA-Public Use
  Company Number: None

PATIENT
  Sex: Female

DRUGS (1)
  1. IMMUNE GLOBULIN INTRAVENOUS (HUMAN) [Suspect]
     Indication: SYSTEMIC LUPUS ERYTHEMATOSUS
     Dosage: 30GRAMS ONCE IV DRIP
     Route: 041
     Dates: start: 20081206, end: 20081206

REACTIONS (3)
  - CONVULSION [None]
  - HYPERTENSION [None]
  - RESUSCITATION [None]
